FAERS Safety Report 6930212-4 (Version None)
Quarter: 2010Q3

REPORT INFORMATION
  Report Type: 
  Country: None (occurrence: None)
  Receive Date: 20100813
  Receipt Date: 20100729
  Transmission Date: 20110219
  Serious: Yes (Hospitalization)
  Sender: FDA-Public Use
  Company Number: 7012818

PATIENT
  Age: 35 Year
  Sex: Female

DRUGS (3)
  1. REBIF [Suspect]
     Indication: SECONDARY PROGRESSIVE MULTIPLE SCLEROSIS
     Dosage: 22 MCG, 3 IN 1 WK, SUBCUTANEOUS
     Route: 058
     Dates: start: 20100501, end: 20100101
  2. SINVASTATINE (SIMVASTATIN) [Concomitant]
  3. LEVOID (LEVOTHYROXINE) [Concomitant]

REACTIONS (3)
  - GASTROINTESTINAL DISORDER [None]
  - SECONDARY PROGRESSIVE MULTIPLE SCLEROSIS [None]
  - URINARY TRACT DISORDER [None]
